FAERS Safety Report 5261829-3 (Version None)
Quarter: 2007Q1

REPORT INFORMATION
  Report Type: 
  Country: None (occurrence: None)
  Receive Date: 20070310
  Receipt Date: 20070228
  Transmission Date: 20070707
  Serious: Yes (Hospitalization)
  Sender: FDA-Public Use
  Company Number: PHHO2007MY02146

PATIENT
  Age: 55 Year
  Sex: Female
  Weight: 55.4 kg

DRUGS (3)
  1. DIAMICRON [Concomitant]
  2. RAD001 [Suspect]
     Indication: RENAL TRANSPLANT
     Dosage: 3.5 MG, BID
     Route: 048
     Dates: start: 20060719
  3. APO-HYDRO [Suspect]
     Dosage: 25 MG / DAY
     Route: 048
     Dates: start: 20061113

REACTIONS (6)
  - ELECTROLYTE IMBALANCE [None]
  - HYPOKALAEMIA [None]
  - HYPONATRAEMIA [None]
  - HYPOVOLAEMIA [None]
  - LETHARGY [None]
  - UPPER RESPIRATORY TRACT INFECTION [None]
